FAERS Safety Report 4536442-3 (Version None)
Quarter: 2004Q4

REPORT INFORMATION
  Report Type: 
  Country: None (occurrence: None)
  Receive Date: 20041223
  Receipt Date: 20041028
  Transmission Date: 20050328
  Serious: No
  Sender: FDA-Public Use
  Company Number: US-GLAXOSMITHKLINE-A0531784A

PATIENT
  Age: 71 Year
  Sex: Male

DRUGS (3)
  1. FLONASE [Suspect]
     Route: 045
  2. HYTRIN [Concomitant]
  3. LIPITOR [Concomitant]

REACTIONS (1)
  - EPISTAXIS [None]
